FAERS Safety Report 8045431-6 (Version None)
Quarter: 2012Q1

REPORT INFORMATION
  Report Type: 
  Country: None (occurrence: None)
  Receive Date: 20120113
  Receipt Date: 20120110
  Transmission Date: 20120608
  Serious: Yes (Death, Life-Threatening, Hospitalization)
  Sender: FDA-Public Use
  Company Number: US-ELI_LILLY_AND_COMPANY-US201110005161

PATIENT
  Age: 81 Year
  Sex: Male
  Weight: 77.098 kg

DRUGS (2)
  1. PLAVIX [Concomitant]
     Dosage: UNK, UNKNOWN
  2. EFFIENT [Suspect]
     Dosage: 5 MG, QD

REACTIONS (4)
  - SEPSIS [None]
  - PNEUMONIA [None]
  - MYELOFIBROSIS [None]
  - RESPIRATORY FAILURE [None]
